FAERS Safety Report 20871216 (Version 1)
Quarter: 2022Q2

REPORT INFORMATION
  Report Type: Spontaneous
  Country: PL (occurrence: PL)
  Receive Date: 20220525
  Receipt Date: 20220525
  Transmission Date: 20220721
  Serious: Yes (Life-Threatening, Hospitalization)
  Sender: FDA-Public Use
  Company Number: PL-STRIDES ARCOLAB LIMITED-2022SP005975

PATIENT
  Age: 34 Year
  Sex: Male

DRUGS (2)
  1. TESTOSTERONE [Suspect]
     Active Substance: TESTOSTERONE
     Indication: Body modification
     Dosage: UNK
     Route: 065
  2. STANOZOLOL [Suspect]
     Active Substance: STANOZOLOL
     Indication: Body modification
     Dosage: UNK
     Route: 065

REACTIONS (8)
  - Renal artery thrombosis [Recovered/Resolved]
  - Renal infarct [Recovered/Resolved]
  - Arterial injury [Recovered/Resolved]
  - Retroperitoneal haematoma [Recovered/Resolved]
  - Renal necrosis [Recovered/Resolved]
  - Acute kidney injury [Recovered/Resolved]
  - Drug abuse [Unknown]
  - Off label use [Unknown]
